FAERS Safety Report 9679219 (Version 3)
Quarter: 2014Q1

REPORT INFORMATION
  Report Type: Report from Study
  Country: ES (occurrence: ES)
  Receive Date: 20131108
  Receipt Date: 20140204
  Transmission Date: 20141002
  Serious: Yes (Other)
  Sender: FDA-Public Use
  Company Number: ES-GILEAD-2013-0086561

PATIENT
  Age: 43 Year
  Sex: Male
  Weight: 115 kg

DRUGS (2)
  1. EMTRICITABINE/RILPIVIRINE/TENOFOVIR DF [Suspect]
     Indication: HIV INFECTION
     Dosage: 1 DF, QD
     Route: 048
     Dates: start: 20130608, end: 20131018
  2. FENOFIBRATE [Concomitant]
     Indication: HYPERTRIGLYCERIDAEMIA
     Dosage: UNK
     Dates: start: 20100121

REACTIONS (5)
  - Choluria [Recovered/Resolved]
  - Hepatotoxicity [Recovered/Resolved]
  - Hepatitis [Recovered/Resolved]
  - Nausea [Recovered/Resolved]
  - Hypertransaminasaemia [Recovered/Resolved]
